FAERS Safety Report 6970211-X (Version None)
Quarter: 2010Q3

REPORT INFORMATION
  Report Type: 
  Country: None (occurrence: None)
  Receive Date: 20100823
  Receipt Date: 20100525
  Transmission Date: 20110219
  Serious: No
  Sender: FDA-Public Use
  Company Number: 012601

PATIENT
  Sex: Female
  Weight: 67.1 kg

DRUGS (9)
  1. CIMZIA [Suspect]
     Indication: CROHN'S DISEASE
     Dosage: SUBCUTANEOUS
     Route: 058
     Dates: start: 20100430
  2. IMURAN [Concomitant]
  3. CIPRO [Concomitant]
  4. INDERAL LA [Concomitant]
  5. NEURONTIN [Concomitant]
  6. DIAZEPAM [Concomitant]
  7. WELLBUTRIN [Concomitant]
  8. IMODIUM [Concomitant]
  9. FLUCONAZOLE [Concomitant]

REACTIONS (9)
  - CHILLS [None]
  - COLD SWEAT [None]
  - DIZZINESS [None]
  - FEELING COLD [None]
  - HEADACHE [None]
  - HYPERHIDROSIS [None]
  - PAIN [None]
  - PYREXIA [None]
  - VISUAL IMPAIRMENT [None]
